FAERS Safety Report 6580435-1 (Version None)
Quarter: 2010Q1

REPORT INFORMATION
  Report Type: 
  Country: None (occurrence: None)
  Receive Date: 20100212
  Receipt Date: 20100208
  Transmission Date: 20100710
  Serious: Yes (Death, Hospitalization, Other)
  Sender: FDA-Public Use
  Company Number: PHEH2008US04830

PATIENT
  Sex: Male
  Weight: 92.517 kg

DRUGS (16)
  1. AREDIA [Suspect]
     Indication: MULTIPLE MYELOMA
     Dosage: 90MG
  2. ZOMETA [Suspect]
     Indication: MULTIPLE MYELOMA
     Dosage: 4 MG, QMO
  3. LIDEX [Concomitant]
  4. CHEMOTHERAPEUTICS NOS [Concomitant]
  5. PERIDEX [Concomitant]
  6. THALIDOMIDE [Concomitant]
  7. DECADRON                                /CAN/ [Concomitant]
  8. COUMADIN [Concomitant]
  9. AMARYL [Concomitant]
  10. PRAVACHOL [Concomitant]
  11. DIGOXIN [Concomitant]
  12. PROCRIT                            /00909301/ [Concomitant]
  13. MULTI-VITAMINS [Concomitant]
  14. CARDIZEM [Concomitant]
  15. THALIDOMIDE [Concomitant]
  16. COUMADIN [Concomitant]

REACTIONS (60)
  - AGRANULOCYTOSIS [None]
  - ANAEMIA [None]
  - ANHEDONIA [None]
  - ANXIETY [None]
  - AORTIC VALVE INCOMPETENCE [None]
  - ARRHYTHMIA [None]
  - ARTHRALGIA [None]
  - ATRIAL FIBRILLATION [None]
  - BONE DEBRIDEMENT [None]
  - BONE DISORDER [None]
  - BONE MARROW DISORDER [None]
  - BONE MARROW TRANSPLANT [None]
  - CERVICAL SPINAL STENOSIS [None]
  - DEAFNESS NEUROSENSORY [None]
  - DEFORMITY [None]
  - DENTAL OPERATION [None]
  - DISABILITY [None]
  - DYSPHAGIA [None]
  - EMOTIONAL DISTRESS [None]
  - EPIDIDYMAL CYST [None]
  - FALL [None]
  - GAIT DISTURBANCE [None]
  - GENITAL CANDIDIASIS [None]
  - GRAFT VERSUS HOST DISEASE [None]
  - HEPATITIS [None]
  - HERPES ZOSTER [None]
  - HYPOAESTHESIA [None]
  - IMPAIRED HEALING [None]
  - INJURY [None]
  - MASS [None]
  - METASTASES TO SPINE [None]
  - MOUTH HAEMORRHAGE [None]
  - MOUTH ULCERATION [None]
  - MULTIPLE MYELOMA [None]
  - MUSCULAR WEAKNESS [None]
  - MUSCULOSKELETAL DISCOMFORT [None]
  - NEUROPATHY PERIPHERAL [None]
  - ORAL MUCOSAL EXFOLIATION [None]
  - OSTEITIS DEFORMANS [None]
  - OSTEOARTHRITIS [None]
  - OSTEOMYELITIS ACUTE [None]
  - OSTEONECROSIS [None]
  - PAIN [None]
  - PAIN IN EXTREMITY [None]
  - POSTOPERATIVE WOUND INFECTION [None]
  - PYREXIA [None]
  - RADIOTHERAPY [None]
  - RIB DEFORMITY [None]
  - SCROTAL ABSCESS [None]
  - SCROTAL INFECTION [None]
  - SEQUESTRECTOMY [None]
  - SHOULDER OPERATION [None]
  - SKIN EXFOLIATION [None]
  - SPINAL COMPRESSION FRACTURE [None]
  - SPINAL CORD COMPRESSION [None]
  - SPINAL OSTEOARTHRITIS [None]
  - STEM CELL TRANSPLANT [None]
  - TACHYCARDIA [None]
  - TOOTH EXTRACTION [None]
  - VISION BLURRED [None]
